FAERS Safety Report 5874924-2 (Version None)
Quarter: 2008Q3

REPORT INFORMATION
  Report Type: 
  Country: None (occurrence: None)
  Receive Date: 20080909
  Receipt Date: 20080829
  Transmission Date: 20090109
  Serious: Yes (Hospitalization)
  Sender: FDA-Public Use
  Company Number: US-JNJFOC-20080900105

PATIENT
  Sex: Male
  Weight: 122.47 kg

DRUGS (1)
  1. DURAGESIC-100 [Suspect]
     Indication: BACK PAIN
     Dosage: 2 X 100 UG/HR AND 1 X 50 UG/HR
     Route: 062

REACTIONS (2)
  - HAEMATOMA [None]
  - THROMBOSIS [None]
